FAERS Safety Report 10159470 (Version 1)
Quarter: 2014Q2

REPORT INFORMATION
  Report Type: Spontaneous
  Country: US (occurrence: US)
  Receive Date: 20140508
  Receipt Date: 20140508
  Transmission Date: 20141212
  Serious: Yes (Other)
  Sender: FDA-Public Use
  Company Number: US-IAC KOREA XML-USA-2014-0113538

PATIENT
  Age: 18 Year
  Sex: Male

DRUGS (3)
  1. OXYCONTIN (NDA 22-272) [Suspect]
     Indication: DRUG ABUSE
  2. XANAX [Suspect]
     Indication: DRUG ABUSE
  3. LORTAB                             /00607101/ [Suspect]
     Indication: DRUG ABUSE

REACTIONS (8)
  - Drug abuse [Unknown]
  - Road traffic accident [Unknown]
  - Impaired driving ability [Unknown]
  - Injury [Unknown]
  - Euphoric mood [Unknown]
  - Memory impairment [Unknown]
  - Disorientation [Unknown]
  - Mental impairment [Unknown]
